FAERS Safety Report 14377270 (Version 2)
Quarter: 2018Q1

REPORT INFORMATION
  Report Type: Report from Study
  Country: GB (occurrence: GB)
  Receive Date: 20180111
  Receipt Date: 20180207
  Transmission Date: 20180509
  Serious: Yes (Death, Hospitalization)
  Sender: FDA-Public Use
  Company Number: GB-VERTEX PHARMACEUTICALS-2018-000138

PATIENT
  Age: 6 Year
  Sex: Female
  Weight: 23 kg

DRUGS (15)
  1. VITAMIN E                          /00110501/ [Concomitant]
     Active Substance: TOCOPHEROL
     Indication: CYSTIC FIBROSIS
     Dosage: 0.5 MILLILITER, QD
     Dates: start: 20120807
  2. OMEPRAZOLE. [Concomitant]
     Active Substance: OMEPRAZOLE
     Indication: CYSTIC FIBROSIS
     Dosage: 10 MG, QD
     Dates: start: 20161107
  3. CLOTRIMAZOLE. [Concomitant]
     Active Substance: CLOTRIMAZOLE
     Indication: VULVOVAGINAL CANDIDIASIS
     Dosage: UNK, TID
     Route: 061
     Dates: start: 20180104, end: 20180108
  4. FLUCLOXACILLIN [Concomitant]
     Active Substance: FLUCLOXACILLIN
     Indication: CYSTIC FIBROSIS
     Dosage: 250 MG, BID
     Dates: start: 20170516
  5. COLECALCIFEROL [Concomitant]
     Active Substance: CHOLECALCIFEROL
     Indication: CYSTIC FIBROSIS
     Dosage: 1000 UT, QD
     Dates: start: 20141224
  6. COTRIMOXAZOLE [Concomitant]
     Active Substance: SULFAMETHOXAZOLE\TRIMETHOPRIM
     Indication: CYSTIC FIBROSIS
     Dosage: 240 MG, BID
     Dates: start: 20150522
  7. ORKAMBI [Suspect]
     Active Substance: IVACAFTOR\LUMACAFTOR
     Indication: CYSTIC FIBROSIS
     Dosage: 200/250 MG, BID VIA GASTROSTOMY
     Route: 048
     Dates: start: 20170908, end: 20180108
  8. HYPERTONIC SALINE SOLUTION [Concomitant]
     Active Substance: SODIUM CHLORIDE
     Indication: CYSTIC FIBROSIS LUNG
     Dosage: 4 MILLILITER, BID
     Route: 055
     Dates: start: 20170831, end: 20180108
  9. SELENIUM [Concomitant]
     Active Substance: SELENIUM
     Indication: BLOOD SELENIUM DECREASED
     Dosage: 30 MICROGRAM, QD
     Dates: start: 20160526
  10. ZINC SULFATE [Concomitant]
     Active Substance: ZINC SULFATE\ZINC SULFATE ANHYDROUS
     Indication: BLOOD ZINC DECREASED
     Dosage: 62.5 MG, QD
     Dates: start: 20150119
  11. TOBRAMYCIN. [Concomitant]
     Active Substance: TOBRAMYCIN
     Dosage: 300 MG, BID
     Route: 055
     Dates: start: 20160406
  12. MAGNESIUM GLYCEROPHOSPHATE [Concomitant]
     Active Substance: MAGNESIUM GLYCEROPHOSPHATE
     Indication: BLOOD MAGNESIUM DECREASED
     Dosage: 4 MMOL/L, TID
     Dates: start: 20170831
  13. SODIUM FEREDETATE [Concomitant]
     Active Substance: SODIUM FEREDETATE
     Indication: IRON DEFICIENCY
     Dosage: 7.5 MILLILITER, BID
     Dates: start: 20170831
  14. AZITHROMYCIN ANHYDROUS. [Concomitant]
     Active Substance: AZITHROMYCIN ANHYDROUS
     Indication: CYSTIC FIBROSIS
     Dosage: 200 MG, BID
     Dates: start: 20150522
  15. CREON [Concomitant]
     Active Substance: PANCRELIPASE AMYLASE\PANCRELIPASE LIPASE\PANCRELIPASE PROTEASE
     Dosage: WITH MEALS/FEEDS, PRN
     Route: 048

REACTIONS (3)
  - Respiratory failure [Fatal]
  - Pneumonia viral [Unknown]
  - Cystic fibrosis lung [Unknown]

NARRATIVE: CASE EVENT DATE: 201711
